FAERS Safety Report 12369427 (Version 1)
Quarter: 2016Q2

REPORT INFORMATION
  Report Type: Spontaneous
  Country: US (occurrence: None)
  Receive Date: 20160513
  Receipt Date: 20160513
  Transmission Date: 20160815
  Serious: Yes (Disabling)
  Sender: FDA-Public Use
  Company Number: None

PATIENT
  Age: 37 Year
  Sex: Female
  Weight: 54.43 kg

DRUGS (2)
  1. LEUPRON OR LEUPROLIDE [Suspect]
     Active Substance: LEUPROLIDE
     Indication: IN VITRO FERTILISATION
     Route: 058
  2. LEUPRON OR LEUPROLIDE [Suspect]
     Active Substance: LEUPROLIDE
     Indication: INFERTILITY
     Route: 058

REACTIONS (14)
  - Pregnancy [None]
  - Fall [None]
  - Excessive eye blinking [None]
  - Eyelid ptosis [None]
  - Blood pressure decreased [None]
  - Muscular weakness [None]
  - Asthenia [None]
  - Blood oestrogen abnormal [None]
  - Activities of daily living impaired [None]
  - Vision blurred [None]
  - Abortion spontaneous [None]
  - Gait disturbance [None]
  - Hormone level abnormal [None]
  - Dropped head syndrome [None]

NARRATIVE: CASE EVENT DATE: 20150217
